FAERS Safety Report 9099067 (Version 1)
Quarter: 2013Q1

REPORT INFORMATION
  Report Type: Spontaneous
  Country: US (occurrence: US)
  Receive Date: 20130213
  Receipt Date: 20130213
  Transmission Date: 20140127
  Serious: No
  Sender: FDA-Public Use
  Company Number: US-PFIZER INC-2013056711

PATIENT
  Age: 48 Year
  Sex: Female

DRUGS (2)
  1. METHOTREXATE SODIUM [Suspect]
  2. PROMETHAZINE HYDROCHLORIDE [Suspect]

REACTIONS (1)
  - Drug hypersensitivity [Unknown]
